FAERS Safety Report 20207112 (Version 1)
Quarter: 2021Q4

REPORT INFORMATION
  Report Type: Spontaneous
  Country: US (occurrence: None)
  Receive Date: 20211219
  Receipt Date: 20211219
  Transmission Date: 20220303
  Serious: No
  Sender: FDA-Public Use
  Company Number: None

PATIENT
  Age: 37 Year
  Sex: Female
  Weight: 71.1 kg

DRUGS (3)
  1. BUPROPION HYDROCHLORIDE [Suspect]
     Active Substance: BUPROPION HYDROCHLORIDE
     Indication: Depression
     Dosage: UNIT DOSE: 1 TABLET
     Route: 048
     Dates: start: 20211208, end: 20211214
  2. XANAX [Concomitant]
     Active Substance: ALPRAZOLAM
  3. VITAMIN D [Concomitant]
     Active Substance: VITAMIN D NOS

REACTIONS (6)
  - Dizziness [None]
  - Nausea [None]
  - Agitation [None]
  - Feeling abnormal [None]
  - Depressed mood [None]
  - Panic disorder [None]

NARRATIVE: CASE EVENT DATE: 20211210
